FAERS Safety Report 13561772 (Version 1)
Quarter: 2017Q2

REPORT INFORMATION
  Report Type: Spontaneous
  Country: AU (occurrence: AU)
  Receive Date: 20170518
  Receipt Date: 20170518
  Transmission Date: 20170830
  Serious: Yes (Hospitalization, Other)
  Sender: FDA-Public Use
  Company Number: AU-IGSAF-IG005250

PATIENT
  Age: 38 Year
  Sex: Male

DRUGS (1)
  1. FLEBOGAMMA DIF [Suspect]
     Active Substance: HUMAN IMMUNOGLOBULIN G
     Indication: CHRONIC INFLAMMATORY DEMYELINATING POLYRADICULONEUROPATHY
     Dosage: 110 G, UNK
     Route: 042
     Dates: start: 20170313, end: 20170315

REACTIONS (5)
  - Migraine [Recovered/Resolved]
  - Hypotension [Recovered/Resolved]
  - Photophobia [Recovered/Resolved]
  - Headache [Recovered/Resolved]
  - Meningitis aseptic [Recovered/Resolved]

NARRATIVE: CASE EVENT DATE: 20170313
